FAERS Safety Report 7557566-2 (Version None)
Quarter: 2011Q2

REPORT INFORMATION
  Report Type: 
  Country: None (occurrence: None)
  Receive Date: 20110610
  Receipt Date: 20110608
  Transmission Date: 20111010
  Serious: Yes (Death)
  Sender: FDA-Public Use
  Company Number: 20084494

PATIENT
  Age: 61 Year
  Sex: Male

DRUGS (5)
  1. HYDROMORPHONE HCL [Concomitant]
  2. DROPERIDOL [Concomitant]
  3. BUPIVICAINE [Concomitant]
  4. LIORESAL [Suspect]
     Indication: MUSCLE SPASTICITY
     Dosage: MCG, DAILY, INTRATHECAL
     Route: 037
  5. KETAMINE HCL [Concomitant]

REACTIONS (2)
  - ABDOMINAL PAIN LOWER [None]
  - DRUG EFFECT DECREASED [None]
